FAERS Safety Report 8228391-4 (Version None)
Quarter: 2012Q1

REPORT INFORMATION
  Report Type: 
  Country: None (occurrence: None)
  Receive Date: 20120322
  Receipt Date: 20110808
  Transmission Date: 20120608
  Serious: Yes (Other)
  Sender: FDA-Public Use
  Company Number: US-BRISTOL-MYERS SQUIBB COMPANY-15945629

PATIENT
  Age: 53 Year
  Sex: Female

DRUGS (3)
  1. ERBITUX [Suspect]
     Indication: HEAD AND NECK CANCER
     Route: 042
     Dates: start: 20110615
  2. ERBITUX [Suspect]
     Indication: OROPHARYNGEAL CANCER STAGE UNSPECIFIED
     Route: 042
     Dates: start: 20110615
  3. BENADRYL [Concomitant]
     Indication: PREMEDICATION
     Dosage: 1DF IS 25 UNITS NOT SPECIFIED
     Route: 042

REACTIONS (4)
  - HYPERSENSITIVITY [None]
  - DERMATITIS ACNEIFORM [None]
  - ANAEMIA [None]
  - ORAL PAIN [None]
